FAERS Safety Report 8993073 (Version 1)
Quarter: 2013Q1

REPORT INFORMATION
  Report Type: Report from Study
  Country: RU (occurrence: RU)
  Receive Date: 20130102
  Receipt Date: 20130102
  Transmission Date: 20140127
  Serious: Yes (Death)
  Sender: FDA-Public Use
  Company Number: RU-ROCHE-1174984

PATIENT
  Age: 44 Year
  Sex: Male
  Weight: 82 kg

DRUGS (3)
  1. BEVACIZUMAB [Suspect]
     Indication: COLON CANCER
     Route: 065
     Dates: start: 20120214, end: 20120420
  2. OXALIPLATIN [Concomitant]
     Indication: COLON CANCER
     Route: 065
     Dates: start: 20120214, end: 20120420
  3. IRINOTECAN [Concomitant]
     Indication: COLON CANCER
     Route: 042
     Dates: start: 20120214, end: 20120420

REACTIONS (2)
  - Retroperitoneal abscess [Fatal]
  - Disease progression [Fatal]
